FAERS Safety Report 7555959-0 (Version None)
Quarter: 2011Q2

REPORT INFORMATION
  Report Type: 
  Country: None (occurrence: None)
  Receive Date: 20110619
  Receipt Date: 20100812
  Transmission Date: 20111010
  Serious: No
  Sender: FDA-Public Use
  Company Number: US-ALLERGAN-1010472US

PATIENT
  Age: 65 Year
  Sex: Male
  Weight: 81.633 kg

DRUGS (1)
  1. SANCTURA [Suspect]
     Indication: HYPERTONIC BLADDER
     Dosage: 1 TAB; BID
     Route: 048
     Dates: start: 20100805, end: 20100806

REACTIONS (1)
  - DYSURIA [None]
